FAERS Safety Report 22166237 (Version 1)
Quarter: 2023Q1

REPORT INFORMATION
  Report Type: Spontaneous
  Country: US (occurrence: None)
  Receive Date: 20230331
  Receipt Date: 20230331
  Transmission Date: 20230418
  Serious: Yes (Hospitalization)
  Sender: FDA-Public Use
  Company Number: None

PATIENT
  Age: 67 Year
  Sex: Male
  Weight: 101.8 kg

DRUGS (2)
  1. PEMBROLIZUMAB [Suspect]
     Active Substance: PEMBROLIZUMAB
     Indication: Metastatic renal cell carcinoma
     Dates: start: 20210622
  2. Lenvatibib 4 mg PO daily [Concomitant]

REACTIONS (7)
  - Immune-mediated enterocolitis [None]
  - Hypokalaemia [None]
  - Hyponatraemia [None]
  - Hypocalcaemia [None]
  - Culture stool positive [None]
  - Pseudomonas infection [None]
  - Intestinal perforation [None]

NARRATIVE: CASE EVENT DATE: 20220723
